FAERS Safety Report 8968809 (Version 1)
Quarter: 2012Q4

REPORT INFORMATION
  Report Type: Report from Study
  Country: CL (occurrence: CL)
  Receive Date: 20121217
  Receipt Date: 20121217
  Transmission Date: 20130627
  Serious: Yes (Other)
  Sender: FDA-Public Use
  Company Number: CL-ROCHE-1164387

PATIENT
  Age: 68 Year
  Sex: Female
  Weight: 63 kg

DRUGS (8)
  1. RITUXIMAB [Suspect]
     Indication: NON-HODGKIN^S LYMPHOMA
     Route: 042
     Dates: start: 20121029
  2. CYCLOPHOSPHAMIDE [Suspect]
     Indication: NON-HODGKIN^S LYMPHOMA
     Route: 042
     Dates: start: 20121029
  3. DOXORUBICIN [Suspect]
     Indication: NON-HODGKIN^S LYMPHOMA
     Route: 042
     Dates: start: 20121029
  4. VINCRISTINE [Suspect]
     Indication: NON-HODGKIN^S LYMPHOMA
     Route: 042
     Dates: start: 20121029
  5. PROPRANOLOL [Concomitant]
     Indication: HYPERTENSION
     Route: 048
     Dates: start: 2009
  6. SALICYLIC ACID [Concomitant]
     Indication: HYPERTENSION
     Route: 048
     Dates: start: 2009
  7. LOSARTAN [Concomitant]
     Indication: HYPERTENSION
     Route: 048
     Dates: start: 2009
  8. METFORMIN [Concomitant]
     Indication: DIABETES MELLITUS
     Route: 048
     Dates: start: 2010

REACTIONS (5)
  - Dehydration [Recovering/Resolving]
  - Herpes oesophagitis [Not Recovered/Not Resolved]
  - Wound [Not Recovered/Not Resolved]
  - Syncope [Recovered/Resolved]
  - Hypotension [Recovered/Resolved]
